FAERS Safety Report 4490394-3 (Version None)
Quarter: 2004Q3

REPORT INFORMATION
  Report Type: 
  Country: None (occurrence: None)
  Receive Date: 20040921
  Receipt Date: 20031119
  Transmission Date: 20050211
  Serious: Yes (Hospitalization, Other)
  Sender: FDA-Public Use
  Company Number: 163-20785-03110390

PATIENT
  Age: 73 Year
  Sex: Female

DRUGS (37)
  1. THALOMID [Suspect]
     Indication: MULTIPLE MYELOMA
     Dosage: 150 MG, DAILY, ORAL; 400 MG, DAILY, ORAL; 150 MG, DAILY, ORAL
     Route: 048
     Dates: end: 20030828
  2. THALOMID [Suspect]
     Indication: MULTIPLE MYELOMA
     Dosage: 150 MG, DAILY, ORAL; 400 MG, DAILY, ORAL; 150 MG, DAILY, ORAL
     Route: 048
     Dates: start: 20030829, end: 20040119
  3. THALOMID [Suspect]
     Indication: MULTIPLE MYELOMA
     Dosage: 150 MG, DAILY, ORAL; 400 MG, DAILY, ORAL; 150 MG, DAILY, ORAL
     Route: 048
     Dates: start: 20030724
  4. CYTOXAN [Suspect]
     Indication: MULTIPLE MYELOMA
     Dosage: 1252.5 MG, INTRAVENOUS; 400 MG/M2, DAILY, INTRAVENOUS
     Route: 042
     Dates: start: 20030902, end: 20030905
  5. CYTOXAN [Suspect]
     Indication: MULTIPLE MYELOMA
     Dosage: 1252.5 MG, INTRAVENOUS; 400 MG/M2, DAILY, INTRAVENOUS
     Route: 042
     Dates: start: 20031010, end: 20031013
  6. CYTOXAN [Suspect]
     Indication: MULTIPLE MYELOMA
     Dosage: 1252.5 MG, INTRAVENOUS; 400 MG/M2, DAILY, INTRAVENOUS
     Route: 042
     Dates: start: 20031219
  7. ADRIAMYCIN PFS [Suspect]
     Indication: MULTIPLE MYELOMA
     Dosage: 25 MG, INTRAVENOUS
     Route: 042
     Dates: start: 20031010, end: 20031013
  8. ADRIAMYCIN PFS [Suspect]
     Indication: MULTIPLE MYELOMA
     Dosage: 25 MG, INTRAVENOUS
     Route: 042
     Dates: start: 20030726
  9. DEXAMETHASONE [Suspect]
     Indication: MULTIPLE MYELOMA
     Dosage: 40 MG, ORAL
     Route: 048
     Dates: start: 20030902, end: 20030905
  10. DEXAMETHASONE [Suspect]
     Indication: MULTIPLE MYELOMA
     Dosage: 40 MG, ORAL
     Route: 048
     Dates: start: 20031010, end: 20031013
  11. DEXAMETHASONE [Suspect]
     Indication: MULTIPLE MYELOMA
     Dosage: 40 MG, ORAL
     Route: 048
     Dates: start: 20031219
  12. VINCRISTINE [Suspect]
     Indication: MULTIPLE MYELOMA
     Dates: start: 20030726
  13. ETOPOSIDE [Suspect]
     Indication: MULTIPLE MYELOMA
     Dosage: 40 MG/M2, DAILY, INTRAVENOUS
     Route: 042
     Dates: start: 20030902, end: 20030905
  14. ETOPOSIDE [Suspect]
     Indication: MULTIPLE MYELOMA
     Dosage: 40 MG/M2, DAILY, INTRAVENOUS
     Route: 042
     Dates: start: 20031219
  15. CISPLATIN [Suspect]
     Dosage: 15 MG/M2, DAILY, INTRAVENOUS
     Route: 042
     Dates: start: 20030902, end: 20030905
  16. CISPLATIN [Suspect]
     Dosage: 15 MG/M2, DAILY, INTRAVENOUS
     Route: 042
     Dates: start: 20031219
  17. DIGOXIN [Concomitant]
  18. DILTIAZEM [Concomitant]
  19. LOVENOX [Concomitant]
  20. COUMADIN [Concomitant]
  21. ACYCLOVIR [Concomitant]
  22. DIFLUCAN [Concomitant]
  23. NEXIUM [Concomitant]
  24. BACTRIM [Concomitant]
  25. SENNA (SENNA) (TABLETS) [Concomitant]
  26. MAGNESIUM OXIDE (MAGNESIUM OXIDE) [Concomitant]
  27. FOLATE (FOLATE SODIUM) [Concomitant]
  28. NEUTRA-PHOS (NEUTRA-PHOS) [Concomitant]
  29. TEQUIN [Concomitant]
  30. MULTIVITAMIN (TABLETS) [Concomitant]
  31. VITAMIN C (ASCORBIC ACID) [Concomitant]
  32. IRON (IRON) (TABLETS) [Concomitant]
  33. CALCIUM (CALCIUM) (TABLETS) [Concomitant]
  34. LASIC (FUROSEMIDE) [Concomitant]
  35. K-DUR 10 [Concomitant]
  36. PROCRIT [Concomitant]
  37. FIBERCON (POLYCARBOPHIL CALCIUM) [Concomitant]

REACTIONS (9)
  - ATRIAL FIBRILLATION [None]
  - C-REACTIVE PROTEIN INCREASED [None]
  - DEEP VEIN THROMBOSIS [None]
  - FEBRILE NEUTROPENIA [None]
  - MUCOSAL INFLAMMATION [None]
  - OEDEMA PERIPHERAL [None]
  - SEPSIS [None]
  - STAPHYLOCOCCAL BACTERAEMIA [None]
  - VENTRICULAR EXTRASYSTOLES [None]
